FAERS Safety Report 7488661-4 (Version None)
Quarter: 2011Q2

REPORT INFORMATION
  Report Type: 
  Country: None (occurrence: None)
  Receive Date: 20110518
  Receipt Date: 20110511
  Transmission Date: 20111010
  Serious: Yes (Death)
  Sender: FDA-Public Use
  Company Number: A0926991A

PATIENT
  Age: 84 Year
  Sex: Female

DRUGS (15)
  1. ARIXTRA [Suspect]
     Indication: DEEP VEIN THROMBOSIS
     Route: 058
     Dates: start: 20081101, end: 20110507
  2. PREDNISONE [Concomitant]
  3. MIRALAX [Concomitant]
  4. TOPROL-XL [Concomitant]
  5. SUCRALFATE [Concomitant]
  6. LORTAB [Concomitant]
  7. CLOTRIMAZOLE [Concomitant]
  8. FLAGYL [Concomitant]
  9. SLOW IRON [Concomitant]
  10. OMEPRAZOLE [Concomitant]
  11. PROMETHAZINE [Concomitant]
  12. VITAMIN D [Concomitant]
  13. PROCRIT [Concomitant]
  14. MORPHINE [Concomitant]
  15. UNSPECIFIED MEDICATION [Concomitant]

REACTIONS (2)
  - OFF LABEL USE [None]
  - MYELODYSPLASTIC SYNDROME [None]
